FAERS Safety Report 7953211 (Version 3)
Quarter: 2012Q4

REPORT INFORMATION
  Report Type: 
  Country: JP (occurrence: JP)
  Receive Date: 20110520
  Receipt Date: 20121228
  Transmission Date: 20130627
  Serious: Yes (Death)
  Sender: FDA-Public Use
  Company Number: JP-AMGEN-JPNCT2011025881

PATIENT
  Age: 80 Year
  Sex: Male

DRUGS (3)
  1. PANITUMUMAB [Suspect]
     Indication: COLORECTAL CANCER
     Dosage: 275 mg, q2wk
     Route: 041
     Dates: start: 20101125, end: 20110208
  2. FERROMIA [Concomitant]
     Indication: IRON DEFICIENCY ANAEMIA
     Dosage: 100 mg, qd
     Route: 048
     Dates: start: 20101125, end: 20110221
  3. GAMOFA [Concomitant]
     Indication: DYSPEPSIA
     Dosage: 100 mg, qd
     Route: 048
     Dates: start: 20101125, end: 20110221

REACTIONS (9)
  - Pneumocystis jiroveci pneumonia [Fatal]
  - Pleural effusion [Unknown]
  - Malaise [Not Recovered/Not Resolved]
  - Diarrhoea [Recovered/Resolved]
  - Hypomagnesaemia [Not Recovered/Not Resolved]
  - Hypocalcaemia [Not Recovered/Not Resolved]
  - Decreased appetite [Not Recovered/Not Resolved]
  - Pyelonephritis [Not Recovered/Not Resolved]
  - Dehydration [Not Recovered/Not Resolved]
